FAERS Safety Report 5884947-5 (Version None)
Quarter: 2008Q3

REPORT INFORMATION
  Report Type: 
  Country: None (occurrence: None)
  Receive Date: 20080916
  Receipt Date: 20080904
  Transmission Date: 20090109
  Serious: Yes (Hospitalization)
  Sender: FDA-Public Use
  Company Number: A0747601A

PATIENT
  Age: 54 Year
  Sex: Female

DRUGS (2)
  1. AVANDIA [Suspect]
     Dosage: 4MG PER DAY
     Route: 065
     Dates: start: 20020101, end: 20070701
  2. AVANDAMET [Suspect]
     Route: 065
     Dates: start: 20020101, end: 20070701

REACTIONS (1)
  - MYOCARDIAL INFARCTION [None]
